APPROVED DRUG PRODUCT: IBUPROFEN
Active Ingredient: IBUPROFEN
Strength: 400MG
Dosage Form/Route: TABLET;ORAL
Application: A202413 | Product #001 | TE Code: AB
Applicant: SHANDONG XINHUA PHARMACEUTICAL CO LTD
Approved: Nov 23, 2016 | RLD: No | RS: No | Type: RX